FAERS Safety Report 23942373 (Version 1)
Quarter: 2024Q2

REPORT INFORMATION
  Report Type: Spontaneous
  Country: US (occurrence: US)
  Receive Date: 20240605
  Receipt Date: 20240605
  Transmission Date: 20240715
  Serious: Yes (Other)
  Sender: FDA-Public Use
  Company Number: US-REGENERON PHARMACEUTICALS, INC.-2024-059962

PATIENT
  Age: 87 Year
  Sex: Female

DRUGS (1)
  1. EYLEA HD [Suspect]
     Active Substance: AFLIBERCEPT
     Indication: Product used for unknown indication
     Dosage: UNK IN BOTH EYES; FORMULATION: HD VIAL
     Dates: start: 202401

REACTIONS (2)
  - Uveitis [Unknown]
  - Vitritis [Unknown]

NARRATIVE: CASE EVENT DATE: 20240101
